FAERS Safety Report 8010492-7 (Version None)
Quarter: 2011Q4

REPORT INFORMATION
  Report Type: 
  Country: None (occurrence: None)
  Receive Date: 20111228
  Receipt Date: 20111221
  Transmission Date: 20120403
  Serious: Yes (Other)
  Sender: FDA-Public Use
  Company Number: US-TEVA-311755USA

PATIENT
  Sex: Female

DRUGS (5)
  1. FLUOXETINE HYDROCHLORIDE [Concomitant]
  2. CLARAVIS [Suspect]
     Route: 048
     Dates: start: 20110909, end: 20111101
  3. IMIPRAMINE HYDROCHLORIDE [Concomitant]
  4. OBETROL [Concomitant]
  5. IMIPRAMINE HYDROCHLORIDE [Concomitant]

REACTIONS (1)
  - ANOREXIA NERVOSA [None]
